FAERS Safety Report 17238697 (Version 2)
Quarter: 2020Q1

REPORT INFORMATION
  Report Type: Spontaneous
  Country: CN (occurrence: CN)
  Receive Date: 20200106
  Receipt Date: 20200124
  Transmission Date: 20200409
  Serious: Yes (Other)
  Sender: FDA-Public Use
  Company Number: CN-ELI_LILLY_AND_COMPANY-CN201912012814

PATIENT
  Sex: Female

DRUGS (2)
  1. UNKNOWN PRODUCT [Suspect]
     Active Substance: UNSPECIFIED INGREDIENT
     Indication: VASCULAR RESISTANCE SYSTEMIC DECREASED
     Dosage: 20 MG, DAILY
     Route: 067
     Dates: start: 201910
  2. UNKNOWN PRODUCT [Suspect]
     Active Substance: UNSPECIFIED INGREDIENT
     Dosage: 20 MG, DAILY
     Route: 067

REACTIONS (5)
  - Off label use [Unknown]
  - Abortion spontaneous [Unknown]
  - Exposure during pregnancy [Unknown]
  - Incorrect route of product administration [Unknown]
  - Abdominal pain [Unknown]
